FAERS Safety Report 4365144-1 (Version None)
Quarter: 2004Q2

REPORT INFORMATION
  Report Type: 
  Country: None (occurrence: None)
  Receive Date: 20040525
  Receipt Date: 20040202
  Transmission Date: 20050107
  Serious: No
  Sender: FDA-Public Use
  Company Number: PHEH2004US01470

PATIENT
  Age: 49 Year
  Sex: Female

DRUGS (1)
  1. ZELNORM [Suspect]
     Indication: GASTRIC DISORDER
     Dosage: QD ORAL
     Route: 048
     Dates: start: 20031001

REACTIONS (1)
  - BLOOD PROLACTIN INCREASED [None]
